FAERS Safety Report 11127304 (Version 1)
Quarter: 2015Q2

REPORT INFORMATION
  Report Type: Spontaneous
  Country: US (occurrence: None)
  Receive Date: 20150519
  Receipt Date: 20150519
  Transmission Date: 20150821
  Serious: Yes (Other)
  Sender: FDA-Public Use
  Company Number: US2015028915

PATIENT
  Age: 73 Year
  Sex: Female

DRUGS (1)
  1. TUMS ULTRA [Suspect]
     Active Substance: CALCIUM CARBONATE
     Indication: DYSPEPSIA
     Dates: start: 201502

REACTIONS (4)
  - Nervousness [None]
  - Flatulence [None]
  - Rectal haemorrhage [None]
  - Haemorrhoids [None]
